FAERS Safety Report 14398152 (Version 1)
Quarter: 2018Q1

REPORT INFORMATION
  Report Type: Spontaneous
  Country: GB (occurrence: GB)
  Receive Date: 20180116
  Receipt Date: 20180116
  Transmission Date: 20180509
  Serious: Yes (Other)
  Sender: FDA-Public Use
  Company Number: GB-ALLERGAN-1801861US

PATIENT
  Sex: Female

DRUGS (1)
  1. ACAMPROSATE CALCIUM - BP [Suspect]
     Active Substance: ACAMPROSATE CALCIUM
     Indication: PRODUCT USED FOR UNKNOWN INDICATION
     Dosage: UNK, UNK
     Route: 065

REACTIONS (3)
  - Lower respiratory tract infection [Unknown]
  - Influenza [Unknown]
  - Oropharyngeal pain [Unknown]
